FAERS Safety Report 8837354 (Version 1)
Quarter: 2012Q4

REPORT INFORMATION
  Report Type: 
  Country: IT (occurrence: IT)
  Receive Date: 20121012
  Receipt Date: 20121012
  Transmission Date: 20130627
  Serious: Yes (Death, Hospitalization, Other)
  Sender: FDA-Public Use
  Company Number: IT-CELGENEUS-083-21880-10060584

PATIENT

DRUGS (2)
  1. REVLIMID [Suspect]
     Indication: NON-HODGKIN^S LYMPHOMA
     Dosage: 20 Milligram
     Route: 048
  2. RITUXIMAB [Concomitant]
     Indication: NON-HODGKIN^S LYMPHOMA
     Route: 041

REACTIONS (15)
  - Death [Fatal]
  - Haematotoxicity [Unknown]
  - Febrile neutropenia [Unknown]
  - Neutropenia [Unknown]
  - Fatigue [Unknown]
  - Gastrointestinal disorder [Unknown]
  - Thrombocytopenia [Unknown]
  - Neuropathy peripheral [Unknown]
  - Tumour flare [Unknown]
  - Non-Hodgkin^s lymphoma [Unknown]
  - Bronchitis [Unknown]
  - Cough [Unknown]
  - Pyrexia [Unknown]
  - Lung infection [Unknown]
  - Infection [Unknown]
